FAERS Safety Report 10193733 (Version 1)
Quarter: 2014Q2

REPORT INFORMATION
  Report Type: Spontaneous
  Country: US (occurrence: US)
  Receive Date: 20140524
  Receipt Date: 20140524
  Transmission Date: 20141212
  Serious: No
  Sender: FDA-Public Use
  Company Number: US-SA-2014SA001006

PATIENT
  Age: 72 Year
  Sex: Male
  Weight: 83 kg

DRUGS (7)
  1. SOLOSTAR [Suspect]
     Indication: TYPE 2 DIABETES MELLITUS
     Dates: start: 201311
  2. LANTUS SOLOSTAR [Suspect]
     Indication: TYPE 2 DIABETES MELLITUS
     Dosage: DOSE:23 UNIT(S)
     Route: 051
     Dates: start: 201311
  3. METFORMIN [Suspect]
     Dosage: METFORMIN AT BREAKFAST.
     Route: 065
  4. ATORVASTATIN [Concomitant]
  5. CHLORTHALIDONE [Concomitant]
  6. CLOPIDOGREL [Concomitant]
  7. FAMOTIDINE [Concomitant]

REACTIONS (2)
  - Abdominal discomfort [Unknown]
  - Blood glucose increased [Unknown]
